FAERS Safety Report 12313091 (Version 1)
Quarter: 2016Q2

REPORT INFORMATION
  Report Type: Spontaneous
  Country: US (occurrence: None)
  Receive Date: 20160427
  Receipt Date: 20160427
  Transmission Date: 20160815
  Serious: No
  Sender: FDA-Public Use
  Company Number: None

PATIENT
  Sex: Female

DRUGS (2)
  1. BYSTOLIC [Concomitant]
     Active Substance: NEBIVOLOL HYDROCHLORIDE
  2. LEVEMIR [Suspect]
     Active Substance: INSULIN DETEMIR

REACTIONS (4)
  - Pruritus [None]
  - Injection site vesicles [None]
  - Injection site discolouration [None]
  - Blister [None]
